FAERS Safety Report 7591778-7 (Version None)
Quarter: 2011Q3

REPORT INFORMATION
  Report Type: 
  Country: None (occurrence: None)
  Receive Date: 20110701
  Receipt Date: 20110701
  Transmission Date: 20111222
  Serious: Yes (Other)
  Sender: FDA-Public Use
  Company Number: None

PATIENT
  Age: 70 Year
  Sex: Female
  Weight: 83.9154 kg

DRUGS (3)
  1. LIPITOR [Suspect]
     Indication: BLOOD CHOLESTEROL
     Dosage: 1 ONCE A DAY PO
     Route: 048
     Dates: start: 20101018, end: 20101119
  2. LIPITOR [Suspect]
     Indication: BLOOD CHOLESTEROL
     Dosage: 1 ONCE A DAY PO
     Route: 048
     Dates: start: 20101120, end: 20101221
  3. LIPITOR [Suspect]

REACTIONS (5)
  - DYSPNOEA [None]
  - FATIGUE [None]
  - MUSCULAR WEAKNESS [None]
  - MYALGIA [None]
  - SWOLLEN TONGUE [None]
